FAERS Safety Report 7718344-4 (Version None)
Quarter: 2011Q3

REPORT INFORMATION
  Report Type: 
  Country: None (occurrence: None)
  Receive Date: 20110830
  Receipt Date: 20110823
  Transmission Date: 20111222
  Serious: Yes (Other)
  Sender: FDA-Public Use
  Company Number: PHHY2011CN76498

PATIENT
  Sex: Female
  Weight: 3.35 kg

DRUGS (1)
  1. SEBIVO [Suspect]
     Route: 064

REACTIONS (3)
  - CYTOMEGALOVIRUS INFECTION [None]
  - HEPATITIS B DNA ASSAY POSITIVE [None]
  - HEPATITIS B SURFACE ANTIGEN POSITIVE [None]
